FAERS Safety Report 5326037-6 (Version None)
Quarter: 2007Q2

REPORT INFORMATION
  Report Type: 
  Country: None (occurrence: None)
  Receive Date: 20070516
  Receipt Date: 20070507
  Transmission Date: 20071010
  Serious: Yes (Life-Threatening, Hospitalization)
  Sender: FDA-Public Use
  Company Number: FR-JNJFOC-20070501584

PATIENT
  Age: 74 Year
  Sex: Female

DRUGS (3)
  1. DURAGESIC-100 [Suspect]
     Indication: DRUG USE FOR UNKNOWN INDICATION
     Route: 062
  2. LEVOTHYROXINE SODIUM [Concomitant]
     Route: 065
  3. ALDACTONE [Concomitant]
     Route: 065

REACTIONS (1)
  - COMA [None]
